FAERS Safety Report 8556877-1 (Version None)
Quarter: 2012Q3

REPORT INFORMATION
  Report Type: 
  Country: None (occurrence: None)
  Receive Date: 20120801
  Receipt Date: 20120727
  Transmission Date: 20120928
  Serious: Yes (Other)
  Sender: FDA-Public Use
  Company Number: US-PFIZER INC-2012051393

PATIENT
  Sex: Male

DRUGS (6)
  1. ENALAPRIL [Concomitant]
     Indication: HYPERTENSION
     Dosage: UNK
  2. FUROSEMIDE [Concomitant]
     Indication: CARDIAC DISORDER
     Dosage: UNK
  3. PHENYTOIN [Concomitant]
     Indication: EPILEPSY
     Dosage: UNK
     Dates: start: 19760101
  4. CHANTIX [Suspect]
     Indication: SMOKING CESSATION THERAPY
     Dosage: UNK
     Dates: start: 20070924, end: 20071229
  5. SIMVASTATIN [Concomitant]
     Indication: BLOOD CHOLESTEROL
     Dosage: UNK
  6. PLAVIX [Concomitant]
     Indication: CARDIAC DISORDER
     Dosage: UNK

REACTIONS (1)
  - DEPRESSION [None]
